FAERS Safety Report 25204411 (Version 2)
Quarter: 2025Q2

REPORT INFORMATION
  Report Type: Report from Study
  Country: US (occurrence: US)
  Receive Date: 20250416
  Receipt Date: 20250617
  Transmission Date: 20250716
  Serious: Yes (Other)
  Sender: UCB
  Company Number: US-UCBSA-2025022335

PATIENT
  Age: 20 Year
  Weight: 57 kg

DRUGS (2)
  1. FINTEPLA [Suspect]
     Active Substance: FENFLURAMINE
     Indication: Lennox-Gastaut syndrome
     Dates: start: 202411
  2. FINTEPLA [Suspect]
     Active Substance: FENFLURAMINE
     Dosage: 6 MILLILITER, 2X/DAY (BID)

REACTIONS (3)
  - Tricuspid valve incompetence [Unknown]
  - Aortic annulus rupture [Unknown]
  - Seizure [Unknown]

NARRATIVE: CASE EVENT DATE: 20250317
